FAERS Safety Report 25794488 (Version 1)
Quarter: 2025Q3

REPORT INFORMATION
  Report Type: Spontaneous
  Country: US (occurrence: US)
  Receive Date: 20250912
  Receipt Date: 20250912
  Transmission Date: 20251021
  Serious: No
  Sender: PHARMACOSMOS A/S
  Company Number: US-NEBO-704342

PATIENT
  Age: 60 Year
  Sex: Female

DRUGS (2)
  1. DEXAMETHASONE [Concomitant]
     Active Substance: DEXAMETHASONE
     Indication: Premedication
  2. COSELA [Suspect]
     Active Substance: TRILACICLIB DIHYDROCHLORIDE
     Indication: Product used for unknown indication

REACTIONS (3)
  - Infusion site erythema [Unknown]
  - Infusion site pain [Unknown]
  - Phlebitis [Unknown]
